FAERS Safety Report 7577551-4 (Version None)
Quarter: 2011Q2

REPORT INFORMATION
  Report Type: 
  Country: None (occurrence: None)
  Receive Date: 20110621
  Receipt Date: 20110607
  Transmission Date: 20111010
  Serious: Yes (Hospitalization)
  Sender: FDA-Public Use
  Company Number: 2011MA007248

PATIENT
  Age: 42 Year
  Sex: Female

DRUGS (3)
  1. METFORMIN HYDROCHLORIDE [Suspect]
     Indication: PRODUCT USED FOR UNKNOWN INDICATION
     Dosage: PO
     Route: 048
     Dates: start: 20070110
  2. QUETIAPINE FUMARATE [Suspect]
     Dosage: PO
     Route: 048
  3. CLOZAPINE [Suspect]
     Indication: SCHIZOPHRENIA
     Dosage: PO
     Route: 048
     Dates: start: 20060912, end: 20061218

REACTIONS (3)
  - WEIGHT INCREASED [None]
  - TACHYCARDIA [None]
  - MULTIPLE DRUG OVERDOSE [None]
